FAERS Safety Report 6485178-0 (Version None)
Quarter: 2009Q4

REPORT INFORMATION
  Report Type: 
  Country: None (occurrence: None)
  Receive Date: 20091209
  Receipt Date: 20090630
  Transmission Date: 20100525
  Serious: No
  Sender: FDA-Public Use
  Company Number: US-AMGEN-KDL351647

PATIENT
  Sex: Male

DRUGS (3)
  1. ENBREL [Suspect]
     Indication: RHEUMATOID ARTHRITIS
     Dates: start: 20070101, end: 20090610
  2. METHOTREXATE [Concomitant]
     Dates: start: 20030601
  3. AMBIEN [Concomitant]
     Dates: start: 20030601

REACTIONS (2)
  - ASTHENIA [None]
  - TREMOR [None]
